FAERS Safety Report 4810834-7 (Version None)
Quarter: 2005Q4

REPORT INFORMATION
  Report Type: 
  Country: None (occurrence: None)
  Receive Date: 20051024
  Receipt Date: 20051012
  Transmission Date: 20060501
  Serious: Yes (Death, Hospitalization, Other)
  Sender: FDA-Public Use
  Company Number: 2005116278

PATIENT
  Age: 61 Year
  Sex: Male
  Weight: 73 kg

DRUGS (11)
  1. PREDNISONE TAB [Suspect]
     Indication: HAEMOLYTIC ANAEMIA
     Dosage: 80 M G (1 IN 1 D), ORAL
     Route: 048
     Dates: start: 20050720
  2. POSACONAZOLE [Suspect]
     Indication: ASPERGILLOSIS
     Dosage: 800 MG (200 MG, 4 IN 1 D), ORAL
     Route: 048
     Dates: start: 20050714, end: 20050816
  3. POSACONAZOLE [Suspect]
     Indication: FUNGAL INFECTION
     Dosage: 800 MG (200 MG, 4 IN 1 D), ORAL
     Route: 048
     Dates: start: 20050714, end: 20050816
  4. VERSED [Suspect]
     Indication: ANAESTHESIA
     Dosage: 2 MG (2 MG, 1 IN 1 D), INTRAVENOUS
     Route: 042
     Dates: start: 20050726, end: 20050726
  5. DILAUDID [Suspect]
     Indication: PAIN
     Dosage: INTRAVENOUS
     Route: 042
  6. FENTANYL [Concomitant]
  7. PROPOFOL [Concomitant]
  8. ZEMURON [Concomitant]
  9. LIDOCAINE HCL INJ [Concomitant]
  10. ROBINUL (GLYCOPYRRONIUM BROMIDE) [Concomitant]
  11. NEOSTIGMINE (NEOSTIGMINE) [Concomitant]

REACTIONS (30)
  - ASPERGILLOSIS [None]
  - CARDIAC DISORDER [None]
  - CARDIOMEGALY [None]
  - CELLULITIS [None]
  - CONDITION AGGRAVATED [None]
  - CORONARY ARTERY DISEASE [None]
  - DISEASE PROGRESSION [None]
  - DRUG INTERACTION [None]
  - FUNGUS CULTURE POSITIVE [None]
  - GANGRENE [None]
  - GASTRIC DISORDER [None]
  - HAEMOLYTIC ANAEMIA [None]
  - HEPATOMEGALY [None]
  - LEUKOCYTOSIS [None]
  - LYMPHADENOPATHY [None]
  - MUSCLE DISORDER [None]
  - MUSCLE NECROSIS [None]
  - PLEURAL ADHESION [None]
  - POST PROCEDURAL COMPLICATION [None]
  - POST PROCEDURAL HAEMORRHAGE [None]
  - PROCEDURAL PAIN [None]
  - PSYCHOTIC DISORDER [None]
  - PULMONARY CONGESTION [None]
  - RENAL DISORDER [None]
  - RESPIRATORY DEPRESSION [None]
  - SKIN NECROSIS [None]
  - SKIN ULCER [None]
  - SPLENIC INFARCTION [None]
  - SPLENOMEGALY [None]
  - VENTRICULAR HYPERTROPHY [None]
